FAERS Safety Report 8953379 (Version 1)
Quarter: 2012Q4

REPORT INFORMATION
  Report Type: 
  Country: None (occurrence: GB)
  Receive Date: 20121206
  Receipt Date: 20121206
  Transmission Date: 20130627
  Serious: Yes (Hospitalization)
  Sender: FDA-Public Use
  Company Number: GB-COVIDIEN/TYCO HEALTHCARE/MALLINCKRODT-T201204199

PATIENT
  Age: 75 Year
  Sex: Female

DRUGS (6)
  1. TRAMADOL [Suspect]
     Indication: PRODUCT USED FOR UNKNOWN INDICATION
     Dosage: UNK
  2. FENTANYL CITRATE [Suspect]
     Indication: ANALGESIC THERAPY
     Dosage: 150 ?g, UNK
  3. CITALOPRAM [Suspect]
     Indication: PRODUCT USED FOR UNKNOWN INDICATION
     Dosage: UNK
  4. METHYLENE BLUE [Suspect]
     Indication: PARATHYROIDECTOMY
     Dosage: 5.5 mg/kg
     Route: 042
  5. ONDANSETRON [Suspect]
     Indication: NAUSEA
     Dosage: 4 mg, UNK
  6. SODIUM CHLORIDE [Concomitant]
     Dosage: 300 ml, UNK

REACTIONS (4)
  - Serotonin syndrome [Recovering/Resolving]
  - Respiratory distress [Recovering/Resolving]
  - Pneumonia [Recovering/Resolving]
  - Restless legs syndrome [None]
